FAERS Safety Report 18522911 (Version 1)
Quarter: 2020Q4

REPORT INFORMATION
  Report Type: Spontaneous
  Country: US (occurrence: US)
  Receive Date: 20201119
  Receipt Date: 20201119
  Transmission Date: 20210114
  Serious: Yes (Disabling)
  Sender: FDA-Public Use
  Company Number: None

PATIENT
  Age: 9 Year
  Sex: Male
  Weight: 29.25 kg

DRUGS (3)
  1. ZYRTEC [Concomitant]
     Active Substance: CETIRIZINE HYDROCHLORIDE
  2. MONTELUKAST SODIUM CHEWABLE TABLETS, USP 5MG [Suspect]
     Active Substance: MONTELUKAST SODIUM
     Indication: MULTIPLE ALLERGIES
     Dates: start: 20191212, end: 20201119
  3. BENADRYL [Concomitant]
     Active Substance: DIPHENHYDRAMINE HYDROCHLORIDE

REACTIONS (8)
  - Insomnia [None]
  - Anxiety [None]
  - Depression [None]
  - Irritability [None]
  - Nightmare [None]
  - Aggression [None]
  - Abnormal behaviour [None]
  - Disturbance in attention [None]

NARRATIVE: CASE EVENT DATE: 20200327
